FAERS Safety Report 23231092 (Version 1)
Quarter: 2023Q4

REPORT INFORMATION
  Report Type: Spontaneous
  Country: ES (occurrence: ES)
  Receive Date: 20231127
  Receipt Date: 20231127
  Transmission Date: 20240110
  Serious: Yes (Hospitalization)
  Sender: FDA-Public Use
  Company Number: ES-SUN PHARMACEUTICAL INDUSTRIES LTD-2023RR-420214

PATIENT
  Age: 59 Year
  Sex: Female

DRUGS (6)
  1. CIPROFLOXACIN [Interacting]
     Active Substance: CIPROFLOXACIN
     Indication: Diabetic foot
     Dosage: 1500 MILLIGRAM, DAILY
     Route: 048
     Dates: start: 20230213, end: 20230228
  2. CLINDAMYCIN PHOSPHATE [Interacting]
     Active Substance: CLINDAMYCIN PHOSPHATE
     Indication: Diabetic foot
     Dosage: 1800 MILLIGRAM, DAILY
     Route: 048
     Dates: start: 20230213, end: 20230228
  3. EPLERENONE [Interacting]
     Active Substance: EPLERENONE
     Indication: Hypertension
     Dosage: 25 MILLIGRAM, DAILY
     Route: 048
     Dates: start: 201111, end: 20230228
  4. ASPIRIN [Interacting]
     Active Substance: ASPIRIN
     Indication: Thrombosis prophylaxis
     Dosage: 100 MILLIGRAM, DAILY
     Route: 048
     Dates: start: 202205
  5. ENALAPRIL [Interacting]
     Active Substance: ENALAPRIL
     Indication: Hypertension
     Dosage: 2.5 MILLIGRAM, DAILY
     Route: 048
     Dates: start: 201112, end: 20230228
  6. PIPERACILLIN SODIUM\TAZOBACTAM SODIUM [Interacting]
     Active Substance: PIPERACILLIN SODIUM\TAZOBACTAM SODIUM
     Indication: Diabetic foot
     Dosage: 12 GRAM, DAILY
     Route: 040
     Dates: start: 20230131, end: 20230213

REACTIONS (2)
  - Acute kidney injury [Recovering/Resolving]
  - Hyperkalaemia [Recovered/Resolved]

NARRATIVE: CASE EVENT DATE: 20230227
